FAERS Safety Report 6457131-4 (Version None)
Quarter: 2009Q4

REPORT INFORMATION
  Report Type: 
  Country: None (occurrence: None)
  Receive Date: 20091125
  Receipt Date: 20091117
  Transmission Date: 20100525
  Serious: Yes (Death)
  Sender: FDA-Public Use
  Company Number: B0606108A

PATIENT
  Sex: Male

DRUGS (2)
  1. ZANAMIVIR [Suspect]
     Indication: H1N1 INFLUENZA
     Route: 042
     Dates: start: 20091026
  2. OSELTAMIVIR [Concomitant]
     Dosage: 75MG TWICE PER DAY
     Route: 048

REACTIONS (1)
  - DEATH [None]
